FAERS Safety Report 18867644 (Version 1)
Quarter: 2021Q1

REPORT INFORMATION
  Report Type: Spontaneous
  Country: JP (occurrence: JP)
  Receive Date: 20210209
  Receipt Date: 20210209
  Transmission Date: 20210420
  Serious: Yes (Death, Other)
  Sender: FDA-Public Use
  Company Number: JP-PFIZER INC-2021109125

PATIENT
  Age: 75 Year
  Sex: Female
  Weight: 47 kg

DRUGS (15)
  1. FENTOS [Concomitant]
     Active Substance: FENTANYL
     Indication: ABDOMINAL PAIN UPPER
     Dosage: UNK
     Route: 061
     Dates: end: 20201216
  2. SYMPROIC [Concomitant]
     Active Substance: NALDEMEDINE
  3. FENTOS [Concomitant]
     Active Substance: FENTANYL
     Indication: DYSPNOEA
  4. GEMCITABINE. [Suspect]
     Active Substance: GEMCITABINE
     Indication: PANCREATIC CARCINOMA
     Dosage: UNK
     Route: 041
     Dates: start: 20201013
  5. PACLITAXEL. [Suspect]
     Active Substance: PACLITAXEL
     Indication: PANCREATIC CARCINOMA
     Dosage: UNK
     Dates: start: 20201013
  6. AMITIZA [Concomitant]
     Active Substance: LUBIPROSTONE
  7. GEMCITABINE. [Suspect]
     Active Substance: GEMCITABINE
     Dosage: 1100 MG, CYCLIC
     Route: 041
     Dates: start: 20201112, end: 20201126
  8. DAIKENCHUTO [Concomitant]
     Active Substance: HERBALS
     Indication: CONSTIPATION
     Dosage: 2.5 G, 3X/DAY
     Route: 048
     Dates: start: 20201126, end: 20201202
  9. CALONAL [Concomitant]
     Active Substance: ACETAMINOPHEN
  10. MAGMITT [Concomitant]
     Active Substance: MAGNESIUM OXIDE
  11. LORAZEPAM. [Concomitant]
     Active Substance: LORAZEPAM
  12. RINDERON [BETAMETHASONE SODIUM PHOSPHATE] [Concomitant]
     Active Substance: BETAMETHASONE SODIUM PHOSPHATE
     Dosage: 2 MG, DAILY
     Dates: start: 20201020
  13. TRAVELMIN CHUROP [Concomitant]
     Active Substance: CHLORPHENIRAMINE MALEATE\SCOPOLAMINE HYDROBROMIDE
  14. LANSOPRAZOLE. [Concomitant]
     Active Substance: LANSOPRAZOLE
     Dosage: 30 MG, DAILY
     Route: 048
     Dates: start: 20201126, end: 20201227
  15. HANGEKOBOKUTO [MAGNOLIA SPP. BARK;PERILLA FRUTESCENS VAR. CRISPA HERB; [Concomitant]

REACTIONS (10)
  - Interstitial lung disease [Fatal]
  - Decreased appetite [Recovered/Resolved]
  - Haemoglobin decreased [Unknown]
  - C-reactive protein increased [Unknown]
  - Malaise [Unknown]
  - Neutrophil count decreased [Unknown]
  - Rash [Recovered/Resolved]
  - Pyrexia [Unknown]
  - Opportunistic infection [Unknown]
  - Enterococcus test positive [Unknown]

NARRATIVE: CASE EVENT DATE: 20201203
